FAERS Safety Report 8282600-4 (Version None)
Quarter: 2012Q2

REPORT INFORMATION
  Report Type: 
  Country: None (occurrence: None)
  Receive Date: 20120410
  Receipt Date: 20120326
  Transmission Date: 20120825
  Serious: Yes (Other)
  Sender: FDA-Public Use
  Company Number: 2012P1010914

PATIENT
  Sex: Female

DRUGS (1)
  1. FLUOROURACIL [Suspect]
     Dosage: QD, OPH
     Route: 047
     Dates: start: 20120317, end: 20120301

REACTIONS (2)
  - EYE IRRITATION [None]
  - INCORRECT ROUTE OF DRUG ADMINISTRATION [None]
